FAERS Safety Report 23736879 (Version 2)
Quarter: 2024Q2

REPORT INFORMATION
  Report Type: Spontaneous
  Country: TR (occurrence: TR)
  Receive Date: 20240412
  Receipt Date: 20240514
  Transmission Date: 20240716
  Serious: Yes (Life-Threatening, Hospitalization, Other)
  Sender: FDA-Public Use
  Company Number: TR-SUN PHARMACEUTICAL INDUSTRIES LTD-2024R1-440844

PATIENT
  Age: 16 Year
  Sex: Female

DRUGS (1)
  1. METFORMIN [Suspect]
     Active Substance: METFORMIN HYDROCHLORIDE
     Indication: Completed suicide
     Dosage: 1000 MILLIGRAM (40 TABLETS)
     Route: 065

REACTIONS (5)
  - Toxicity to various agents [Unknown]
  - Lactic acidosis [Unknown]
  - Suicide attempt [Unknown]
  - Intentional overdose [Unknown]
  - Hypotension [Unknown]
